FAERS Safety Report 5614687-9 (Version None)
Quarter: 2008Q1

REPORT INFORMATION
  Report Type: 
  Country: None (occurrence: None)
  Receive Date: 20080131
  Receipt Date: 20080117
  Transmission Date: 20080703
  Serious: Yes (Other)
  Sender: FDA-Public Use
  Company Number: TRP_01024_2008

PATIENT
  Age: 39 Year
  Sex: Male

DRUGS (2)
  1. RIBAPAK/RIBAVIRIN/THREE RIVERS PHARMA [Suspect]
     Indication: DRUG USE FOR UNKNOWN INDICATION
     Dosage: (DF ORAL)
     Route: 048
     Dates: start: 20071214, end: 20080104
  2. PEG-INTRON [Suspect]
     Indication: DRUG USE FOR UNKNOWN INDICATION
     Dosage: (DF SUBCUTANEOUS)
     Route: 058
     Dates: start: 20071214, end: 20080104

REACTIONS (6)
  - AGGRESSION [None]
  - BRONCHITIS [None]
  - EAR PAIN [None]
  - HEADACHE [None]
  - INFLUENZA [None]
  - MOOD ALTERED [None]
